FAERS Safety Report 4850330-4 (Version None)
Quarter: 2005Q4

REPORT INFORMATION
  Report Type: 
  Country: None (occurrence: None)
  Receive Date: 20051207
  Receipt Date: 20051207
  Transmission Date: 20060501
  Serious: Yes (Hospitalization)
  Sender: FDA-Public Use
  Company Number: None

PATIENT
  Age: 60 Year
  Sex: Male
  Weight: 55 kg

DRUGS (1)
  1. DIGOXIN [Suspect]
     Indication: CARDIAC FAILURE CONGESTIVE
     Dosage: 0.25MG QD PO
     Route: 048
     Dates: start: 20050729, end: 20050831

REACTIONS (4)
  - BRADYCARDIA [None]
  - COLD SWEAT [None]
  - DYSPNOEA [None]
  - EXERCISE ELECTROCARDIOGRAM ABNORMAL [None]
